FAERS Safety Report 7679637-2 (Version None)
Quarter: 2011Q3

REPORT INFORMATION
  Report Type: 
  Country: None (occurrence: None)
  Receive Date: 20110812
  Receipt Date: 20110808
  Transmission Date: 20111222
  Serious: Yes (Hospitalization, Other)
  Sender: FDA-Public Use
  Company Number: US-PFIZER INC-2011130944

PATIENT
  Sex: Male

DRUGS (8)
  1. CHANTIX [Suspect]
     Dosage: 0.5/1 MG
     Dates: start: 20090501, end: 20090601
  2. SEROQUEL [Concomitant]
     Indication: SLEEP DISORDER
     Dosage: UNK
     Dates: start: 20070101, end: 20100101
  3. SOMA [Concomitant]
     Indication: PAIN
     Dosage: UNK
     Dates: start: 19990101, end: 20100101
  4. CYMBALTA [Concomitant]
     Indication: DEPRESSION
     Dosage: UNK
     Dates: start: 20070101
  5. LUNESTA [Concomitant]
     Indication: SLEEP DISORDER
     Dosage: UNK
     Dates: start: 20070101, end: 20100101
  6. CHANTIX [Suspect]
     Indication: SMOKING CESSATION THERAPY
     Dosage: 0.5/1 MG
     Dates: start: 20090101, end: 20090201
  7. HYDROCODONE [Concomitant]
     Indication: PAIN
     Dosage: UNK
     Dates: start: 19990101, end: 20100101
  8. VALIUM [Concomitant]
     Indication: ANXIETY
     Dosage: UNK
     Dates: start: 19990101

REACTIONS (7)
  - SUICIDE ATTEMPT [None]
  - AGITATION [None]
  - IRRITABILITY [None]
  - INTENTIONAL OVERDOSE [None]
  - DEPRESSION [None]
  - AGGRESSION [None]
  - ANXIETY [None]
